FAERS Safety Report 23897811 (Version 2)
Quarter: 2025Q2

REPORT INFORMATION
  Report Type: Spontaneous
  Country: FR (occurrence: FR)
  Receive Date: 20240524
  Receipt Date: 20250402
  Transmission Date: 20250717
  Serious: Yes (Hospitalization)
  Sender: GUERBET
  Company Number: None

PATIENT
  Age: 67 Year
  Sex: Male
  Weight: 85 kg

DRUGS (7)
  1. OPTIRAY [Suspect]
     Active Substance: IOVERSOL
     Indication: Angiocardiogram
     Route: 042
     Dates: start: 20240422, end: 20240422
  2. ATORVASTATIN [Suspect]
     Active Substance: ATORVASTATIN
     Indication: Ischaemic cardiomyopathy
     Route: 048
     Dates: start: 20240422, end: 20240428
  3. BISOPROLOL FUMARATE [Suspect]
     Active Substance: BISOPROLOL FUMARATE
     Indication: Ischaemic cardiomyopathy
     Route: 048
     Dates: start: 20240422, end: 20240428
  4. EZETIMIBE [Suspect]
     Active Substance: EZETIMIBE
     Indication: Ischaemic cardiomyopathy
     Route: 048
     Dates: start: 20240422, end: 20240428
  5. CLOPIDOGREL [Suspect]
     Active Substance: CLOPIDOGREL BISULFATE
     Indication: Ischaemic cardiomyopathy
     Route: 048
     Dates: start: 20240422, end: 20240501
  6. ENALAPRIL MALEATE\LERCANIDIPINE HYDROCHLORIDE [Suspect]
     Active Substance: ENALAPRIL MALEATE\LERCANIDIPINE HYDROCHLORIDE
     Indication: Product used for unknown indication
     Route: 048
     Dates: start: 20240315, end: 20240501
  7. KARDEGIC [Concomitant]
     Active Substance: ASPIRIN DL-LYSINE
     Indication: Ischaemic cardiomyopathy
     Route: 048
     Dates: start: 20240422

REACTIONS (1)
  - Rash maculo-papular [Recovered/Resolved]

NARRATIVE: CASE EVENT DATE: 20240424
